FAERS Safety Report 13621737 (Version 1)
Quarter: 2017Q2

REPORT INFORMATION
  Report Type: Spontaneous
  Country: US (occurrence: US)
  Receive Date: 20170607
  Receipt Date: 20170607
  Transmission Date: 20170830
  Serious: No
  Sender: FDA-Public Use
  Company Number: US-ROCHE-1887029

PATIENT
  Sex: Female
  Weight: 79.5 kg

DRUGS (9)
  1. NORGESTIMATE [Concomitant]
     Active Substance: NORGESTIMATE
     Dosage: 1 TABLET BY MOUTH DAILY
     Route: 048
     Dates: start: 20161130
  2. LEVOTHYROXINE. [Concomitant]
     Active Substance: LEVOTHYROXINE
     Dosage: 1 TABLET MY MOUTH EVERY MORNING
     Route: 048
     Dates: start: 20161021
  3. LIOTHYRONINE [Concomitant]
     Active Substance: LIOTHYRONINE
     Dosage: 1 TABLET BY MOUTH DAILY
     Route: 048
     Dates: start: 20161021
  4. CYTOMEL [Concomitant]
     Active Substance: LIOTHYRONINE SODIUM
     Route: 065
     Dates: end: 201404
  5. LISINOPRIL. [Concomitant]
     Active Substance: LISINOPRIL
     Dosage: 1 TABLET BY MOUTH DAILY
     Route: 048
     Dates: start: 20161021
  6. KLONOPIN [Suspect]
     Active Substance: CLONAZEPAM
     Indication: PRODUCT USED FOR UNKNOWN INDICATION
     Dosage: TAKE 2 TABLETS BY MOUTH BEDTIME
     Route: 048
     Dates: start: 20161021
  7. CYTOMEL [Concomitant]
     Active Substance: LIOTHYRONINE SODIUM
     Dosage: IN MORNING 12.5MCG AND AFTERNOON 12.5MCG
     Route: 065
  8. GENOTROPIN [Suspect]
     Active Substance: SOMATROPIN
     Indication: HYPOPITUITARISM
     Dosage: FOR 7DAYS
     Route: 058
  9. ETHINYL ESTRADIOL [Concomitant]
     Active Substance: ETHINYL ESTRADIOL
     Route: 048

REACTIONS (7)
  - Weight increased [Unknown]
  - Vomiting [Unknown]
  - Drug ineffective [Unknown]
  - Fatigue [Unknown]
  - Feeling abnormal [Unknown]
  - Nausea [Not Recovered/Not Resolved]
  - Insomnia [Unknown]
